FAERS Safety Report 20062470 (Version 6)
Quarter: 2022Q2

REPORT INFORMATION
  Report Type: Spontaneous
  Country: PT (occurrence: PT)
  Receive Date: 20211112
  Receipt Date: 20220420
  Transmission Date: 20220721
  Serious: Yes (Death, Life-Threatening, Hospitalization, Other)
  Sender: FDA-Public Use
  Company Number: PT-NOVARTISPH-NVSC2021PT259235

PATIENT
  Age: 73 Year
  Sex: Male

DRUGS (4)
  1. METFORMIN HYDROCHLORIDE [Suspect]
     Active Substance: METFORMIN HYDROCHLORIDE
     Indication: Type 2 diabetes mellitus
     Dosage: 1000 MG, QD
     Route: 048
  2. JARDIANCE [Concomitant]
     Active Substance: EMPAGLIFLOZIN
     Indication: Type 2 diabetes mellitus
     Dosage: 10 MG, QD
     Route: 065
  3. JARDIANCE [Concomitant]
     Active Substance: EMPAGLIFLOZIN
     Dosage: 1000 MG, QD
     Route: 048
  4. SITAGLIPTIN [Concomitant]
     Active Substance: SITAGLIPTIN
     Indication: Type 2 diabetes mellitus
     Dosage: 850 PLUS 50MG
     Route: 065

REACTIONS (21)
  - Metabolic acidosis [Fatal]
  - Acute kidney injury [Fatal]
  - Euglycaemic diabetic ketoacidosis [Fatal]
  - Aortic thrombosis [Fatal]
  - Multiple organ dysfunction syndrome [Fatal]
  - Shock [Fatal]
  - Renal artery thrombosis [Fatal]
  - Mesenteric artery thrombosis [Fatal]
  - Renal disorder [Fatal]
  - Acute abdomen [Fatal]
  - Death [Fatal]
  - Lactic acidosis [Recovered/Resolved]
  - Acidosis [Not Recovered/Not Resolved]
  - Hyperhidrosis [Not Recovered/Not Resolved]
  - Tachypnoea [Not Recovered/Not Resolved]
  - Venous pressure jugular [Not Recovered/Not Resolved]
  - Oliguria [Not Recovered/Not Resolved]
  - Bronchospasm [Not Recovered/Not Resolved]
  - Asthenia [Not Recovered/Not Resolved]
  - Tachycardia [Not Recovered/Not Resolved]
  - Orthopnoea [Not Recovered/Not Resolved]
